FAERS Safety Report 5192862-8 (Version None)
Quarter: 2006Q4

REPORT INFORMATION
  Report Type: 
  Country: None (occurrence: None)
  Receive Date: 20061228
  Receipt Date: 20060116
  Transmission Date: 20070319
  Serious: No
  Sender: FDA-Public Use
  Company Number: US-GLAXOSMITHKLINE-A0589441A

PATIENT
  Age: 83 Year
  Sex: Male

DRUGS (2)
  1. FLONASE [Suspect]
     Dosage: 2SPR PER DAY
     Route: 045
     Dates: start: 19990101, end: 20060106
  2. NO CONCURRENT MEDICATION [Concomitant]

REACTIONS (2)
  - LACRIMATION INCREASED [None]
  - VISION BLURRED [None]
